FAERS Safety Report 23148204 (Version 3)
Quarter: 2023Q4

REPORT INFORMATION
  Report Type: Spontaneous
  Country: HU (occurrence: HU)
  Receive Date: 20231106
  Receipt Date: 20231228
  Transmission Date: 20240109
  Serious: Yes (Death)
  Sender: FDA-Public Use
  Company Number: HU-MYLANLABS-2023M1116651

PATIENT
  Age: 84 Year
  Sex: Male

DRUGS (6)
  1. AMLODIPINE [Suspect]
     Active Substance: AMLODIPINE BESYLATE
     Indication: Product used for unknown indication
     Dosage: 0.5 DOSAGE FORM, BID
     Route: 065
  2. AMLODIPINE [Suspect]
     Active Substance: AMLODIPINE BESYLATE
     Dosage: 400 MILLIGRAM, QD
     Route: 065
  3. ASPIRIN [Suspect]
     Active Substance: ASPIRIN
     Indication: Product used for unknown indication
     Dosage: 3000 MILLIGRAM, QD
     Route: 065
  4. ASPIRIN [Suspect]
     Active Substance: ASPIRIN
     Dosage: 100 MILLIGRAM, QD
     Route: 065
  5. VINPOCETINE [Suspect]
     Active Substance: VINPOCETINE
     Indication: Product used for unknown indication
     Dosage: 250 MILLIGRAM, QD
     Route: 065
  6. VINPOCETINE [Suspect]
     Active Substance: VINPOCETINE
     Dosage: 5 MILLIGRAM, TID
     Route: 065

REACTIONS (3)
  - Cardiac arrest [Fatal]
  - Overdose [Fatal]
  - Suicide attempt [Fatal]

NARRATIVE: CASE EVENT DATE: 20230120
